FAERS Safety Report 9894591 (Version 2)
Quarter: 2014Q1

REPORT INFORMATION
  Report Type: Spontaneous
  Country: JP (occurrence: JP)
  Receive Date: 20140213
  Receipt Date: 20140224
  Transmission Date: 20141002
  Serious: Yes (Other)
  Sender: FDA-Public Use
  Company Number: PHHY2014JP015658

PATIENT
  Age: 71 Year
  Sex: Male

DRUGS (4)
  1. 5-FLUOROURACIL [Suspect]
     Indication: RECTAL CANCER METASTATIC
  2. OXALIPLATIN [Suspect]
     Indication: RECTAL CANCER METASTATIC
  3. FOLINIC ACID [Suspect]
     Indication: RECTAL CANCER METASTATIC
  4. BEVACIZUMAB [Suspect]
     Indication: RECTAL CANCER METASTATIC

REACTIONS (10)
  - Interstitial lung disease [Recovered/Resolved]
  - Pyrexia [Recovered/Resolved]
  - Dyspnoea [Recovered/Resolved]
  - Hypoxia [Recovered/Resolved]
  - Respiratory failure [Recovered/Resolved]
  - Neuropathy peripheral [Unknown]
  - Drug eruption [Unknown]
  - Decreased appetite [Unknown]
  - Pruritus [Unknown]
  - Neutropenia [Unknown]
